FAERS Safety Report 20156597 (Version 1)
Quarter: 2021Q4

REPORT INFORMATION
  Report Type: Spontaneous
  Country: US (occurrence: None)
  Receive Date: 20211207
  Receipt Date: 20211207
  Transmission Date: 20220303
  Serious: Yes (Other)
  Sender: FDA-Public Use
  Company Number: None

PATIENT
  Age: 26 Year
  Sex: Female
  Weight: 58.5 kg

DRUGS (1)
  1. ATORVASTATIN [Suspect]
     Active Substance: ATORVASTATIN
     Dosage: OTHER QUANTITY : 30 TABLET(S);?

REACTIONS (2)
  - Wrong patient received product [None]
  - Product dispensing error [None]

NARRATIVE: CASE EVENT DATE: 20211121
